FAERS Safety Report 19261079 (Version 4)
Quarter: 2021Q3

REPORT INFORMATION
  Report Type: Spontaneous
  Country: US (occurrence: US)
  Receive Date: 20210515
  Receipt Date: 20210721
  Transmission Date: 20211014
  Serious: No
  Sender: FDA-Public Use
  Company Number: US-SA-2021SA158409

PATIENT
  Age: 50 Year
  Sex: Female

DRUGS (22)
  1. DULERA [Concomitant]
     Active Substance: FORMOTEROL FUMARATE DIHYDRATE\MOMETASONE FUROATE
  2. CELECOXIB. [Concomitant]
     Active Substance: CELECOXIB
  3. XIIDRA [Concomitant]
     Active Substance: LIFITEGRAST
  4. PANTOPRAZOLE [Concomitant]
     Active Substance: PANTOPRAZOLE
  5. BUDESONIDE. [Concomitant]
     Active Substance: BUDESONIDE
  6. RIZATRIPTAN. [Concomitant]
     Active Substance: RIZATRIPTAN
     Dosage: 10MG
  7. LEVOTHYROXIN [Concomitant]
     Active Substance: LEVOTHYROXINE
     Indication: HYPOTHYROIDISM
  8. LISINOPRIL. [Concomitant]
     Active Substance: LISINOPRIL
  9. CEFDINIR. [Concomitant]
     Active Substance: CEFDINIR
  10. DOXYCYCLIN [DOXYCYCLINE] [Concomitant]
     Active Substance: DOXYCYCLINE
  11. DILTIAZEM. [Concomitant]
     Active Substance: DILTIAZEM
  12. VITAMIN D NOS [Concomitant]
     Active Substance: VITAMIN D NOS
  13. DILT?XR [Concomitant]
     Active Substance: DILTIAZEM
  14. METFORMIN [Concomitant]
     Active Substance: METFORMIN HYDROCHLORIDE
  15. DUPIXENT [Suspect]
     Active Substance: DUPILUMAB
     Indication: ASTHMA
     Dosage: 200 MG, QOW
     Route: 058
     Dates: start: 20200128
  16. AZELASTINE. [Concomitant]
     Active Substance: AZELASTINE HYDROCHLORIDE
  17. AZELASTINE. [Concomitant]
     Active Substance: AZELASTINE HYDROCHLORIDE
  18. OMEPRAZOLE. [Concomitant]
     Active Substance: OMEPRAZOLE
  19. MONTELUKAST [Concomitant]
     Active Substance: MONTELUKAST SODIUM
  20. PREDNISONE. [Concomitant]
     Active Substance: PREDNISONE
  21. NEXIUM I.V. [Concomitant]
     Active Substance: ESOMEPRAZOLE SODIUM
  22. ONDANSETRON [Concomitant]
     Active Substance: ONDANSETRON
     Dosage: 4MG

REACTIONS (6)
  - Injection site rash [Not Recovered/Not Resolved]
  - Illness [Not Recovered/Not Resolved]
  - Nasopharyngitis [Not Recovered/Not Resolved]
  - Injection site swelling [Not Recovered/Not Resolved]
  - Asthma [Not Recovered/Not Resolved]
  - Sinusitis [Unknown]

NARRATIVE: CASE EVENT DATE: 20210702
